FAERS Safety Report 9096455 (Version 1)
Quarter: 2013Q1

REPORT INFORMATION
  Report Type: Spontaneous
  Country: US (occurrence: US)
  Receive Date: 20130211
  Receipt Date: 20130211
  Transmission Date: 20140127
  Serious: Yes (Other)
  Sender: FDA-Public Use
  Company Number: US-AMGEN-USASP2013007881

PATIENT
  Sex: Female

DRUGS (2)
  1. ENBREL [Suspect]
     Indication: RHEUMATOID ARTHRITIS
     Dosage: 25 MG, TWICE EVERY 4 DAYS
     Dates: start: 19990201
  2. ENBREL [Suspect]
     Indication: PSORIASIS

REACTIONS (4)
  - Spinal fracture [Recovered/Resolved]
  - Fall [Recovered/Resolved]
  - Walking aid user [Recovered/Resolved]
  - Psoriasis [Not Recovered/Not Resolved]
